FAERS Safety Report 7429732-8 (Version None)
Quarter: 2011Q2

REPORT INFORMATION
  Report Type: 
  Country: None (occurrence: None)
  Receive Date: 20110421
  Receipt Date: 20110418
  Transmission Date: 20111010
  Serious: Yes (Hospitalization, Disabling, Other)
  Sender: FDA-Public Use
  Company Number: US-PFIZER INC-2011024794

PATIENT
  Sex: Female

DRUGS (3)
  1. CHANTIX [Suspect]
     Indication: SMOKING CESSATION THERAPY
     Dosage: HALF MG FIRST WEEK, ONE MG PER WEEK THERAFTER
     Dates: start: 20101126, end: 20101204
  2. ZANTAC [Concomitant]
     Indication: GASTRITIS
     Dosage: UNK
     Dates: start: 20070101
  3. NEXIUM [Concomitant]
     Indication: GASTRITIS
     Dosage: UNK
     Dates: start: 20070101

REACTIONS (8)
  - SCHIZOAFFECTIVE DISORDER [None]
  - DELUSION [None]
  - PSYCHOTIC DISORDER [None]
  - SUICIDE ATTEMPT [None]
  - STRESS [None]
  - PAIN [None]
  - PAIN IN EXTREMITY [None]
  - GENERALISED ANXIETY DISORDER [None]
